FAERS Safety Report 8988771 (Version 2)
Quarter: 2013Q1

REPORT INFORMATION
  Report Type: Spontaneous
  Country: IN (occurrence: IN)
  Receive Date: 20121228
  Receipt Date: 20130104
  Transmission Date: 20140127
  Serious: Yes (Death, Other)
  Sender: FDA-Public Use
  Company Number: IN-GE HEALTHCARE MEDICAL DIAGNOSTICS-OMPQ-NO-1212S-1367

PATIENT
  Age: 50 Year
  Sex: Male

DRUGS (5)
  1. OMNIPAQUE [Suspect]
     Indication: CHEST PAIN
     Route: 013
     Dates: start: 20121220, end: 20121220
  2. OMNIPAQUE [Suspect]
     Indication: DIAGNOSTIC PROCEDURE
  3. ATORVASTATIN [Concomitant]
  4. TELMASARTAN [Concomitant]
  5. HYDROCORTISONE [Concomitant]

REACTIONS (2)
  - Sudden cardiac death [Fatal]
  - Chills [Recovered/Resolved]
